APPROVED DRUG PRODUCT: CAFFEINE CITRATE
Active Ingredient: CAFFEINE CITRATE
Strength: EQ 30MG BASE/3ML (EQ 10MG BASE/ML)
Dosage Form/Route: SOLUTION;ORAL
Application: A090064 | Product #001
Applicant: AMERICAN REGENT INC
Approved: Nov 20, 2009 | RLD: No | RS: No | Type: DISCN